FAERS Safety Report 6936932-X (Version None)
Quarter: 2010Q3

REPORT INFORMATION
  Report Type: 
  Country: None (occurrence: None)
  Receive Date: 20100823
  Receipt Date: 20100709
  Transmission Date: 20110219
  Serious: Yes (Death, Life-Threatening, Hospitalization, Other)
  Sender: FDA-Public Use
  Company Number: US-BAXTER-2008BH010988

PATIENT
  Age: 9 Year
  Sex: Female
  Weight: 33 kg

DRUGS (19)
  1. HEPARIN SODIUM INJECTION [Suspect]
     Indication: INTRAVENOUS CATHETER MANAGEMENT
     Route: 042
     Dates: start: 20080112, end: 20080209
  2. HEPARIN SODIUM INJECTION [Suspect]
     Route: 042
     Dates: start: 20080112, end: 20080112
  3. HEPARIN SODIUM INJECTION [Suspect]
     Route: 051
     Dates: start: 20080201
  4. HEPARIN SODIUM INJECTION [Suspect]
     Route: 042
     Dates: start: 20080115, end: 20080115
  5. HEPARIN SODIUM INJECTION [Suspect]
     Route: 040
     Dates: start: 20080112, end: 20080112
  6. HEPARIN SODIUM INJECTION [Suspect]
     Route: 040
     Dates: start: 20080114, end: 20080114
  7. HEPARIN SODIUM INJECTION [Suspect]
     Route: 040
     Dates: start: 20080116, end: 20080116
  8. HEPARIN SODIUM 5,000 UNITS IN DEXTROSE 5% [Suspect]
     Indication: CEREBRAL THROMBOSIS
     Route: 042
     Dates: start: 20080112, end: 20080120
  9. HEPARIN SODIUM 5,000 UNITS IN DEXTROSE 5% [Suspect]
     Route: 042
     Dates: start: 20080112, end: 20080202
  10. HEPARIN SODIUM 5,000 UNITS IN DEXTROSE 5% [Suspect]
     Route: 042
     Dates: start: 20080209, end: 20080209
  11. HEPARIN SODIUM 5,000 UNITS IN DEXTROSE 5% [Suspect]
     Route: 042
     Dates: start: 20080204, end: 20080204
  12. HEPARIN SODIUM 5,000 UNITS IN DEXTROSE 5% [Suspect]
     Route: 042
     Dates: start: 20080112, end: 20080112
  13. HEPARIN SODIUM 5,000 UNITS IN DEXTROSE 5% [Suspect]
     Route: 042
     Dates: start: 20080112, end: 20080112
  14. HEPARIN SODIUM 5,000 UNITS IN DEXTROSE 5% [Suspect]
     Route: 042
     Dates: start: 20080114, end: 20080114
  15. HEPARIN SODIUM 5,000 UNITS IN DEXTROSE 5% [Suspect]
     Route: 042
     Dates: start: 20080115, end: 20080115
  16. HEPARIN SODIUM 5,000 UNITS IN DEXTROSE 5% [Suspect]
     Route: 042
     Dates: start: 20080113, end: 20080116
  17. HEPARIN SODIUM 5,000 UNITS IN DEXTROSE 5% [Suspect]
     Route: 042
     Dates: start: 20080116, end: 20080116
  18. MOTRIN [Concomitant]
     Indication: PRODUCT USED FOR UNKNOWN INDICATION
     Route: 048
  19. LOVENOX [Concomitant]
     Indication: PRODUCT USED FOR UNKNOWN INDICATION
     Route: 058

REACTIONS (24)
  - ABNORMAL BEHAVIOUR [None]
  - ACIDOSIS [None]
  - APHASIA [None]
  - APNOEA [None]
  - BLOOD PRESSURE INCREASED [None]
  - BRADYCARDIA [None]
  - CARDIAC ARREST [None]
  - CARDIAC FAILURE [None]
  - CARDIOGENIC SHOCK [None]
  - CARDIOPULMONARY FAILURE [None]
  - CONVULSION [None]
  - DEPRESSED LEVEL OF CONSCIOUSNESS [None]
  - GENERAL PHYSICAL HEALTH DETERIORATION [None]
  - HAEMODYNAMIC INSTABILITY [None]
  - HYPERLACTACIDAEMIA [None]
  - HYPOTENSION [None]
  - NAUSEA [None]
  - OXYGEN SATURATION DECREASED [None]
  - POST PROCEDURAL DRAINAGE [None]
  - PYREXIA [None]
  - STATUS EPILEPTICUS [None]
  - SUBDURAL EMPYEMA [None]
  - UNRESPONSIVE TO STIMULI [None]
  - VOMITING [None]
